FAERS Safety Report 15310465 (Version 1)
Quarter: 2018Q3

REPORT INFORMATION
  Report Type: Report from Study
  Country: US (occurrence: US)
  Receive Date: 20180823
  Receipt Date: 20180823
  Transmission Date: 20181010
  Serious: Yes (Hospitalization)
  Sender: FDA-Public Use
  Company Number: US-CELGENEUS-USA-20180805228

PATIENT
  Age: 58 Year
  Sex: Female
  Weight: 82.6 kg

DRUGS (7)
  1. REVLIMID [Suspect]
     Active Substance: LENALIDOMIDE
     Dosage: 15 MILLIGRAM
     Route: 048
     Dates: start: 20180812, end: 20180814
  2. TYLENOL [Concomitant]
     Active Substance: ACETAMINOPHEN
     Indication: PYREXIA
     Dosage: 650 MILLIGRAM
     Route: 048
  3. PREDNISONE. [Suspect]
     Active Substance: PREDNISONE
     Indication: B-CELL LYMPHOMA REFRACTORY
     Dosage: 100 MILLIGRAM
     Route: 048
     Dates: start: 20180810, end: 20180814
  4. REVLIMID [Suspect]
     Active Substance: LENALIDOMIDE
     Indication: B-CELL LYMPHOMA REFRACTORY
     Dosage: 15 MILLIGRAM
     Route: 048
     Dates: start: 20180810
  5. IBRUTINIB [Suspect]
     Active Substance: IBRUTINIB
     Indication: B-CELL LYMPHOMA REFRACTORY
     Dosage: 560 MILLIGRAM
     Route: 048
     Dates: start: 20180810, end: 20180814
  6. VENETOCLAX. [Suspect]
     Active Substance: VENETOCLAX
     Indication: B-CELL LYMPHOMA REFRACTORY
     Dosage: 50 MILLIGRAM
     Route: 048
     Dates: start: 20180811, end: 20180814
  7. OBINUTUZUMAB. [Suspect]
     Active Substance: OBINUTUZUMAB
     Indication: B-CELL LYMPHOMA REFRACTORY
     Dosage: 1000 MILLIGRAM
     Route: 041
     Dates: start: 20180810, end: 20180811

REACTIONS (3)
  - Hypotension [Unknown]
  - Pyrexia [Unknown]
  - Sinus tachycardia [Unknown]

NARRATIVE: CASE EVENT DATE: 20180811
